FAERS Safety Report 20010459 (Version 7)
Quarter: 2023Q1

REPORT INFORMATION
  Report Type: Spontaneous
  Country: IN (occurrence: IN)
  Receive Date: 20211028
  Receipt Date: 20230309
  Transmission Date: 20230417
  Serious: Yes (Other)
  Sender: FDA-Public Use
  Company Number: IN-PFIZER INC-2019181716

PATIENT
  Age: 62 Year
  Sex: Female
  Weight: 35.828 kg

DRUGS (5)
  1. PALBOCICLIB [Suspect]
     Active Substance: PALBOCICLIB
     Indication: Breast cancer metastatic
     Dosage: 125 MG, 1X/DAY
     Route: 048
     Dates: start: 20180621, end: 202208
  2. LETROZOLE [Concomitant]
     Active Substance: LETROZOLE
     Dosage: 2.5 MG, 1X/DAY
  3. LETROZOLE [Concomitant]
     Active Substance: LETROZOLE
     Dosage: 5 MG
  4. ZOLEDRONIC ACID [Concomitant]
     Active Substance: ZOLEDRONIC ACID
     Dosage: UNK
  5. SHELCAL [CALCIUM CARBONATE;COLECALCIFEROL] [Concomitant]
     Dosage: UNK, 2X/DAY (1-0-1)

REACTIONS (9)
  - Blood pressure increased [Unknown]
  - Arthralgia [Unknown]
  - Dyspnoea exertional [Unknown]
  - Paraesthesia [Unknown]
  - Headache [Unknown]
  - Pain [Unknown]
  - Haemoglobin decreased [Unknown]
  - Infection [Unknown]
  - Asthenia [Unknown]
